FAERS Safety Report 15117781 (Version 2)
Quarter: 2018Q3

REPORT INFORMATION
  Report Type: Report from Study
  Country: None (occurrence: JP)
  Receive Date: 20180707
  Receipt Date: 20180727
  Transmission Date: 20181010
  Serious: Yes (Other)
  Sender: FDA-Public Use
  Company Number: JP-ABBVIE-18K-087-2411166-00

PATIENT
  Age: 67 Year
  Sex: Female

DRUGS (12)
  1. HUMIRA [Suspect]
     Active Substance: ADALIMUMAB
     Route: 058
     Dates: start: 20170619, end: 20180411
  2. BROMFENAC SODIUM HYDRATE [Concomitant]
     Indication: MACULAR OEDEMA
     Dosage: AS NEEDED
     Dates: start: 20170703
  3. TAFLUPROST [Concomitant]
     Active Substance: TAFLUPROST
     Indication: OCULAR HYPERTENSION
     Dosage: AS NEEDED
     Route: 065
  4. DORZOLAMIDE HYDROCHLORIDE AND TIMOLOL MALEATE [Concomitant]
     Active Substance: DORZOLAMIDE HYDROCHLORIDE\TIMOLOL MALEATE
     Indication: OCULAR HYPERTENSION
     Dosage: AS NEEDED
  5. HUMIRA [Suspect]
     Active Substance: ADALIMUMAB
     Route: 058
     Dates: start: 20170419, end: 20170517
  6. METHOTREXATE. [Concomitant]
     Active Substance: METHOTREXATE
     Indication: MACULAR OEDEMA
     Dosage: 7.5 MG / WEEK
     Route: 048
     Dates: start: 20170816, end: 20180116
  7. METHOTREXATE. [Concomitant]
     Active Substance: METHOTREXATE
     Dosage: 7.5 MG / WEEK
     Route: 048
     Dates: start: 20180214
  8. HUMIRA [Suspect]
     Active Substance: ADALIMUMAB
     Indication: UVEITIS
     Route: 058
     Dates: start: 20170412
  9. METHOTREXATE. [Concomitant]
     Active Substance: METHOTREXATE
     Indication: VITREOUS OPACITIES
     Dosage: 5 MG / WEEK
     Route: 048
     Dates: start: 20180117, end: 20180213
  10. AZITHROMYCIN DIHYDRATE. [Concomitant]
     Active Substance: AZITHROMYCIN DIHYDRATE
     Indication: UVEITIS
     Route: 048
     Dates: start: 20170605, end: 20170607
  11. BRIMONIDINE TARTRATE. [Concomitant]
     Active Substance: BRIMONIDINE TARTRATE
     Indication: OCULAR HYPERTENSION
     Route: 047
     Dates: end: 20170719
  12. ERYTHROMYCIN ETHYLSUCCINATE. [Concomitant]
     Active Substance: ERYTHROMYCIN ETHYLSUCCINATE
     Indication: UVEITIS
     Route: 048
     Dates: start: 20170830

REACTIONS (4)
  - Vitreous opacities [Recovering/Resolving]
  - Injection site erythema [Recovered/Resolved]
  - Macular oedema [Not Recovered/Not Resolved]
  - Upper respiratory tract inflammation [Recovered/Resolved]

NARRATIVE: CASE EVENT DATE: 20170531
